FAERS Safety Report 6158817-1 (Version None)
Quarter: 2009Q2

REPORT INFORMATION
  Report Type: 
  Country: None (occurrence: None)
  Receive Date: 20090417
  Receipt Date: 20090408
  Transmission Date: 20091009
  Serious: Yes (Other)
  Sender: FDA-Public Use
  Company Number: GB-ABBOTT-09P-167-0568277-00

PATIENT
  Sex: Female

DRUGS (1)
  1. PROSTAP SR DEPOT INJECTION [Suspect]
     Indication: DRUG USE FOR UNKNOWN INDICATION
     Route: 058
     Dates: start: 20081110

REACTIONS (8)
  - ABDOMINAL PAIN [None]
  - DYSPNOEA [None]
  - FEELING HOT [None]
  - HYPERSENSITIVITY [None]
  - INFLAMMATION [None]
  - PRURITUS [None]
  - THROAT TIGHTNESS [None]
  - WHEEZING [None]
